FAERS Safety Report 5017711-X (Version None)
Quarter: 2006Q2

REPORT INFORMATION
  Report Type: 
  Country: None (occurrence: None)
  Receive Date: 20060526
  Receipt Date: 20060516
  Transmission Date: 20061013
  Serious: Yes (Death, Other)
  Sender: FDA-Public Use
  Company Number: USA-2005-0023835

PATIENT
  Age: 20 Year
  Sex: Male
  Weight: 62.6 kg

DRUGS (7)
  1. MORPHINE SULFATE [Suspect]
  2. VALIUM [Suspect]
  3. TEMAZEPAM [Suspect]
  4. OXAZEPAM [Suspect]
  5. CODEINE (CODEINE) [Suspect]
  6. ADDERALL (DEXAMFETAMINE SULFATE, DEXAMFETAMINE SACCHARATE, AMFETAMINE [Concomitant]
  7. XANAX [Concomitant]

REACTIONS (7)
  - ACCIDENTAL DEATH [None]
  - AUTOIMMUNE THYROIDITIS [None]
  - BLOOD CHLORIDE INCREASED [None]
  - BLOOD POTASSIUM INCREASED [None]
  - INTENTIONAL DRUG MISUSE [None]
  - MULTIPLE DRUG OVERDOSE ACCIDENTAL [None]
  - RESPIRATORY ARREST [None]
